FAERS Safety Report 22976187 (Version 2)
Quarter: 2023Q4

REPORT INFORMATION
  Report Type: Report from Study
  Country: FR (occurrence: FR)
  Receive Date: 20230925
  Receipt Date: 20231011
  Transmission Date: 20240109
  Serious: Yes (Other)
  Sender: FDA-Public Use
  Company Number: FR-CELLTRION INC.-2023FR018446

PATIENT

DRUGS (6)
  1. BEVACIZUMAB [Suspect]
     Active Substance: BEVACIZUMAB
     Indication: Hepatocellular carcinoma
     Dosage: 15 MILLIGRAM PER KILOGRAM, Q3WK/EVERY 3 WEEKS/DOSAGE1: UNIT=NOT AVAILABLE
     Route: 065
  2. BEVACIZUMAB [Suspect]
     Active Substance: BEVACIZUMAB
     Indication: Hepatocellular carcinoma
     Dosage: 15 MILLIGRAM PER KILOGRAM, Q3WK/EVERY 3 WEEKS/DOSAGE1: UNIT=NOT AVAILABLE
     Route: 065
  3. ATEZOLIZUMAB [Suspect]
     Active Substance: ATEZOLIZUMAB
     Indication: Hepatocellular carcinoma
     Dosage: 1200 MILLIGRAM, Q3WK/EVERY 3 WEEKS
     Route: 065
  4. SORAFENIB [Concomitant]
     Active Substance: SORAFENIB
     Indication: Hepatocellular carcinoma
     Dosage: UNK
     Route: 065
  5. LENVATINIB [Concomitant]
     Active Substance: LENVATINIB
     Indication: Hepatocellular carcinoma
     Dosage: UNK
     Route: 065
  6. EVEROLIMUS [Concomitant]
     Active Substance: EVEROLIMUS
     Indication: Hepatocellular carcinoma
     Dosage: UNK
     Route: 065

REACTIONS (7)
  - Hepatocellular carcinoma [Unknown]
  - Thrombocytopenia [Unknown]
  - Gene mutation [Unknown]
  - Rash maculo-papular [Unknown]
  - Anaemia [Unknown]
  - Therapy non-responder [Unknown]
  - Off label use [Unknown]
